FAERS Safety Report 8492711-6 (Version None)
Quarter: 2012Q3

REPORT INFORMATION
  Report Type: 
  Country: None (occurrence: None)
  Receive Date: 20120706
  Receipt Date: 20120704
  Transmission Date: 20120928
  Serious: Yes (Hospitalization, Other)
  Sender: FDA-Public Use
  Company Number: BR-ROCHE-1031852

PATIENT
  Sex: Female
  Weight: 83 kg

DRUGS (8)
  1. PRESSAT [Concomitant]
  2. FLUOXETINE [Concomitant]
  3. SOLOSA [Concomitant]
  4. PANTOPRAZOLE [Concomitant]
  5. ATENOLOL [Concomitant]
  6. PRELONE [Concomitant]
  7. TRAMADOL HYDROCHLORIDE [Concomitant]
  8. ACTEMRA [Suspect]
     Indication: RHEUMATOID ARTHRITIS
     Route: 042
     Dates: start: 20100601, end: 20110601

REACTIONS (4)
  - CARDIAC DISORDER [None]
  - FALL [None]
  - WOUND [None]
  - ULCER [None]
